FAERS Safety Report 17173931 (Version 1)
Quarter: 2019Q4

REPORT INFORMATION
  Report Type: Spontaneous
  Country: US (occurrence: US)
  Receive Date: 20191219
  Receipt Date: 20191219
  Transmission Date: 20200122
  Serious: Yes (Hospitalization)
  Sender: FDA-Public Use
  Company Number: US-009507513-1912USA007816

PATIENT
  Age: 69 Year
  Sex: Female
  Weight: 98.63 kg

DRUGS (10)
  1. LISINOPRIL. [Concomitant]
     Active Substance: LISINOPRIL
  2. ALENDRONATE SODIUM. [Concomitant]
     Active Substance: ALENDRONATE SODIUM
  3. FUROSEMIDE. [Concomitant]
     Active Substance: FUROSEMIDE
  4. LEVOTHYROXINE SODIUM. [Concomitant]
     Active Substance: LEVOTHYROXINE SODIUM
  5. KEYTRUDA [Suspect]
     Active Substance: PEMBROLIZUMAB
     Indication: PRODUCT USED FOR UNKNOWN INDICATION
     Dosage: STRENGHT: 100MG/4ML VIAL
     Route: 041
     Dates: end: 201911
  6. ADVAIR HFA [Concomitant]
     Active Substance: FLUTICASONE PROPIONATE\SALMETEROL XINAFOATE
  7. VITAMINS (UNSPECIFIED) [Concomitant]
     Active Substance: VITAMINS
  8. LENVIMA [Suspect]
     Active Substance: LENVATINIB
     Indication: ENDOMETRIAL CANCER
     Dosage: 20 MILLIGRAM, QD
     Route: 048
     Dates: start: 20191017, end: 201911
  9. TYLENOL [Concomitant]
     Active Substance: ACETAMINOPHEN
  10. LIPITOR [Concomitant]
     Active Substance: ATORVASTATIN CALCIUM

REACTIONS (8)
  - Diarrhoea [Unknown]
  - Constipation [Unknown]
  - Faeces discoloured [Recovered/Resolved]
  - Decreased appetite [Unknown]
  - Incision site complication [Unknown]
  - Blood pressure diastolic increased [Unknown]
  - Pain [Recovered/Resolved]
  - Gastric disorder [Unknown]

NARRATIVE: CASE EVENT DATE: 201910
